FAERS Safety Report 8102135-9 (Version None)
Quarter: 2012Q1

REPORT INFORMATION
  Report Type: 
  Country: None (occurrence: None)
  Receive Date: 20120201
  Receipt Date: 20120127
  Transmission Date: 20120608
  Serious: Yes (Hospitalization)
  Sender: FDA-Public Use
  Company Number: GB-AMGEN-GBRCT2010000418

PATIENT
  Age: 55 Year
  Sex: Male
  Weight: 62 kg

DRUGS (2)
  1. PANITUMUMAB [Suspect]
     Indication: COLORECTAL CANCER
     Dosage: 740 MG, UNK
     Route: 042
     Dates: start: 20100211
  2. IRINOTECAN HCL [Suspect]
     Dosage: 560 MG, UNK
     Route: 042
     Dates: start: 20100211

REACTIONS (3)
  - HYPOMAGNESAEMIA [None]
  - INFECTION [None]
  - HYPOCALCAEMIA [None]
